FAERS Safety Report 4272813-0 (Version None)
Quarter: 2004Q1

REPORT INFORMATION
  Report Type: 
  Country: None (occurrence: None)
  Receive Date: 20040114
  Receipt Date: 20040109
  Transmission Date: 20041129
  Serious: Yes (Hospitalization)
  Sender: FDA-Public Use
  Company Number: 2003192078US

PATIENT
  Age: 48 Year
  Sex: Female
  Weight: 82.5 kg

DRUGS (7)
  1. ELLENCE [Suspect]
     Indication: INFLAMMATORY CARCINOMA OF THE BREAST
     Dosage: CYCLIC
     Dates: start: 20031104
  2. COMPARATOR-VINORELBINE (VINORELBINE) INJECTION [Suspect]
     Indication: INFLAMMATORY CARCINOMA OF THE BREAST
     Dosage: SEE IMAGE
     Dates: start: 20031106, end: 20031217
  3. COMPARATOR-VINORELBINE (VINORELBINE) INJECTION [Suspect]
     Indication: INFLAMMATORY CARCINOMA OF THE BREAST
     Dosage: SEE IMAGE
     Dates: start: 20031231
  4. COMPAZINE [Concomitant]
  5. PROCRIT (ERYTHROPOIETIN) [Concomitant]
  6. ATENOLOL [Concomitant]
  7. NEUPOGEN [Concomitant]

REACTIONS (2)
  - FEBRILE NEUTROPENIA [None]
  - THROMBOCYTOPENIA [None]
